FAERS Safety Report 19383617 (Version 2)
Quarter: 2021Q3

REPORT INFORMATION
  Report Type: Spontaneous
  Country: AR (occurrence: AR)
  Receive Date: 20210607
  Receipt Date: 20210706
  Transmission Date: 20211014
  Serious: No
  Sender: FDA-Public Use
  Company Number: AR-PFIZER INC-2021561032

PATIENT
  Age: 70 Year
  Sex: Female

DRUGS (1)
  1. ENBREL [Suspect]
     Active Substance: ETANERCEPT
     Indication: RHEUMATOID ARTHRITIS
     Dosage: 50 MG, WEEKLY
     Dates: start: 20200605

REACTIONS (5)
  - Device failure [Unknown]
  - Drug dose omission by device [Unknown]
  - Pain [Unknown]
  - Nasopharyngitis [Unknown]
  - Mobility decreased [Unknown]
